FAERS Safety Report 5735269-4 (Version None)
Quarter: 2008Q2

REPORT INFORMATION
  Report Type: 
  Country: None (occurrence: None)
  Receive Date: 20080512
  Receipt Date: 20080503
  Transmission Date: 20081010
  Serious: Yes (Hospitalization)
  Sender: FDA-Public Use
  Company Number: BR-JNJFOC-20080500794

PATIENT
  Age: 8 Year
  Sex: Male
  Weight: 23.3 kg

DRUGS (1)
  1. HALDOL [Suspect]
     Indication: ACCIDENTAL EXPOSURE
     Route: 048

REACTIONS (5)
  - ACCIDENTAL EXPOSURE [None]
  - HYPOTENSION [None]
  - MUSCLE DISORDER [None]
  - SPEECH DISORDER [None]
  - TACHYCARDIA [None]
